FAERS Safety Report 7339819-6 (Version None)
Quarter: 2011Q1

REPORT INFORMATION
  Report Type: 
  Country: None (occurrence: None)
  Receive Date: 20110304
  Receipt Date: 20110304
  Transmission Date: 20110831
  Serious: Yes (Hospitalization)
  Sender: FDA-Public Use
  Company Number: None

PATIENT
  Age: 40 Year
  Sex: Female

DRUGS (1)
  1. USTEKINUMAB 45 MG CENTOCOR ORTHO BIOTECH [Suspect]
     Indication: PSORIASIS
     Dosage: 45 MG ONCE SQ
     Dates: start: 20110224, end: 20110224

REACTIONS (8)
  - HEART RATE ABNORMAL [None]
  - CHEST DISCOMFORT [None]
  - THROAT TIGHTNESS [None]
  - BLOOD PRESSURE FLUCTUATION [None]
  - TREMOR [None]
  - NERVOUSNESS [None]
  - ANXIETY [None]
  - INJECTION SITE INDURATION [None]
